FAERS Safety Report 16641218 (Version 1)
Quarter: 2019Q3

REPORT INFORMATION
  Report Type: Report from Study
  Country: None (occurrence: US)
  Receive Date: 20190729
  Receipt Date: 20190729
  Transmission Date: 20191004
  Serious: Yes (Hospitalization)
  Sender: FDA-Public Use
  Company Number: US-ABBVIE-19K-163-2830957-00

PATIENT
  Sex: Male
  Weight: 74.91 kg

DRUGS (1)
  1. HUMIRA [Suspect]
     Active Substance: ADALIMUMAB
     Indication: CROHN^S DISEASE
     Dosage: CITRATE FREE
     Route: 058
     Dates: start: 2019

REACTIONS (7)
  - Vitamin D deficiency [Recovering/Resolving]
  - Vitamin E deficiency [Recovering/Resolving]
  - Lymphadenitis [Recovered/Resolved]
  - Thrombosis [Recovered/Resolved]
  - Anaemia [Recovering/Resolving]
  - Crohn^s disease [Recovering/Resolving]
  - Vitamin B complex deficiency [Recovering/Resolving]

NARRATIVE: CASE EVENT DATE: 2019
